FAERS Safety Report 8560309-7 (Version None)
Quarter: 2012Q3

REPORT INFORMATION
  Report Type: 
  Country: None (occurrence: None)
  Receive Date: 20120727
  Receipt Date: 20120727
  Transmission Date: 20120928
  Serious: Yes (Hospitalization)
  Sender: FDA-Public Use
  Company Number: None

PATIENT
  Age: 70 Year
  Sex: Female
  Weight: 60.5 kg

DRUGS (15)
  1. PLETAL [Suspect]
     Indication: PERIPHERAL ARTERIAL OCCLUSIVE DISEASE
     Dosage: 50MG BID PO RECENT
     Route: 048
  2. VIT B [Concomitant]
  3. CHOLECALCIFEROL [Concomitant]
  4. ZIAC [Concomitant]
  5. VITAMIN B-12 [Concomitant]
  6. LOVAZA [Concomitant]
  7. M.V.I. [Concomitant]
  8. ADVIL [Suspect]
     Indication: PERIPHERAL ARTERIAL OCCLUSIVE DISEASE
     Dosage: 2TABS Q4 PRN PO RECENT
     Route: 048
  9. ASPIRIN [Suspect]
     Indication: PERIPHERAL ARTERIAL OCCLUSIVE DISEASE
     Dosage: 81MG  QPM PO RECENT
     Route: 048
  10. FOSAMAX [Suspect]
     Indication: OSTEOPOROSIS
     Dosage: 70MG QWK  CHRONIC
  11. LIPITOR [Concomitant]
  12. PROTONIX [Concomitant]
  13. PLAVIX [Suspect]
     Indication: PERIPHERAL ARTERIAL OCCLUSIVE DISEASE
     Dosage: 75MG DAILY PO RECENT
     Route: 048
  14. LIBRAX [Concomitant]
  15. OR DYE DRUGS [Concomitant]

REACTIONS (2)
  - DEVICE DISLOCATION [None]
  - UPPER GASTROINTESTINAL HAEMORRHAGE [None]
